FAERS Safety Report 20991753 (Version 1)
Quarter: 2022Q2

REPORT INFORMATION
  Report Type: Spontaneous
  Country: US (occurrence: None)
  Receive Date: 20220621
  Receipt Date: 20220621
  Transmission Date: 20220721
  Serious: Yes (Hospitalization)
  Sender: FDA-Public Use
  Company Number: None

PATIENT
  Sex: Male

DRUGS (2)
  1. XYNTHA [Suspect]
     Active Substance: ANTIHEMOPHILIC FACTOR, HUMAN RECOMBINANT RESIDUES 743-1636 DELETED
     Indication: Factor VIII deficiency
     Dosage: OTHER QUANTITY : 1910UNITS;?FREQUENCY : AS DIRECTED;?INJECT 499MG (3.33 ML) SUBCUTANEOUSLY EVERY 4 W
     Route: 042
     Dates: start: 20220525
  2. XYNTHA [Suspect]
     Active Substance: ANTIHEMOPHILIC FACTOR, HUMAN RECOMBINANT RESIDUES 743-1636 DELETED
     Indication: Factor VIII deficiency
     Dosage: OTHER QUANTITY : 241 UNITS;?FREQUENCY : AS DIRECTED;?INJECT 499MG (3.33 ML) SUBCUTANEOUSLY EVERY 4 W
     Route: 042
     Dates: start: 20220525

REACTIONS (1)
  - Gastric ulcer haemorrhage [None]

NARRATIVE: CASE EVENT DATE: 20220501
